FAERS Safety Report 4816979-X (Version None)
Quarter: 2005Q3

REPORT INFORMATION
  Report Type: 
  Country: None (occurrence: None)
  Receive Date: 20050929
  Receipt Date: 20050616
  Transmission Date: 20060218
  Serious: No
  Sender: FDA-Public Use
  Company Number: 05P-163-0303394

PATIENT
  Age: 67 Year
  Sex: Female
  Weight: 83.4619 kg

DRUGS (7)
  1. HUMIRA [Suspect]
     Indication: RHEUMATOID ARTHRITIS
     Dosage: 40 MG, 1 IN 2 WK, SUBCUTANEOUS
     Route: 058
     Dates: start: 20050201, end: 20050528
  2. SIMVASTATIN [Concomitant]
  3. METHOTREXATE [Concomitant]
  4. PREDNISONE [Concomitant]
  5. METFORMIN HYDROCHLORIDE [Concomitant]
  6. FOLIC ACID [Concomitant]
  7. DIAZEPAM [Concomitant]

REACTIONS (4)
  - MUSCULAR WEAKNESS [None]
  - NERVOUSNESS [None]
  - RASH [None]
  - TREMOR [None]
